FAERS Safety Report 12749545 (Version 1)
Quarter: 2016Q3

REPORT INFORMATION
  Report Type: Spontaneous
  Country: US (occurrence: US)
  Receive Date: 20160915
  Receipt Date: 20160915
  Transmission Date: 20161109
  Serious: Yes (Other)
  Sender: FDA-Public Use
  Company Number: US-PFIZER INC-2016427103

PATIENT
  Age: 48 Year
  Sex: Male
  Weight: 77.11 kg

DRUGS (4)
  1. GABAPENTIN. [Suspect]
     Active Substance: GABAPENTIN
     Dosage: 100 MG, DAILY
  2. GABAPENTIN. [Suspect]
     Active Substance: GABAPENTIN
     Indication: SPINAL CORD INJURY
     Dosage: 300 MG, 4X/DAY
  3. GABAPENTIN. [Suspect]
     Active Substance: GABAPENTIN
     Dosage: 2800 MG, DAILY
  4. GABAPENTIN. [Suspect]
     Active Substance: GABAPENTIN
     Dosage: 2 OF THE 600MG IN AM, AT 1PM TAKES 2 OF THE 600MG AND 1 600MG AT NIGHT

REACTIONS (7)
  - Spinal cord compression [Unknown]
  - Burning sensation [Unknown]
  - Spinal column stenosis [Unknown]
  - Neuralgia [Unknown]
  - Product use issue [Not Recovered/Not Resolved]
  - Back pain [Unknown]
  - Drug dose omission [Unknown]

NARRATIVE: CASE EVENT DATE: 2014
